FAERS Safety Report 4953995-1 (Version None)
Quarter: 2006Q1

REPORT INFORMATION
  Report Type: 
  Country: None (occurrence: None)
  Receive Date: 20060327
  Receipt Date: 20060321
  Transmission Date: 20060701
  Serious: Yes (Other)
  Sender: FDA-Public Use
  Company Number: PHRM2006FR01121

PATIENT
  Age: 47 Year
  Sex: Male

DRUGS (3)
  1. ESIDRIX [Suspect]
     Indication: HYPERTENSION
     Dosage: 25 MG, QD
     Route: 048
     Dates: start: 20050101
  2. TEVETEN [Concomitant]
     Route: 048
  3. ZANIDIP [Concomitant]
     Route: 048

REACTIONS (5)
  - DIPLOPIA [None]
  - DRY EYE [None]
  - EYE INFLAMMATION [None]
  - EYE IRRITATION [None]
  - MYASTHENIC SYNDROME [None]
